FAERS Safety Report 24188159 (Version 1)
Quarter: 2024Q3

REPORT INFORMATION
  Report Type: Spontaneous
  Country: CN (occurrence: CN)
  Receive Date: 20240808
  Receipt Date: 20240808
  Transmission Date: 20241016
  Serious: Yes (Hospitalization)
  Sender: JIANGSU HENGRUI MEDICINE
  Company Number: CN-Jiangsu Hengrui Medicine Co., Ltd.-2160171

PATIENT
  Age: 49 Year
  Sex: Female

DRUGS (2)
  1. OXALIPLATIN [Suspect]
     Active Substance: OXALIPLATIN
     Indication: Hepatic cancer
     Dates: start: 20240715, end: 20240715
  2. FLUOROURACIL [Suspect]
     Active Substance: FLUOROURACIL
     Dates: start: 20240715

REACTIONS (1)
  - Haematemesis [Recovering/Resolving]

NARRATIVE: CASE EVENT DATE: 20240721
